FAERS Safety Report 17072596 (Version 2)
Quarter: 2020Q2

REPORT INFORMATION
  Report Type: Report from Study
  Country: AU (occurrence: AU)
  Receive Date: 20191125
  Receipt Date: 20200423
  Transmission Date: 20200713
  Serious: Yes (Death, Hospitalization)
  Sender: FDA-Public Use
  Company Number: AU-TOLMAR, INC.-19AU001031

PATIENT
  Age: 87 Year
  Sex: Male

DRUGS (1)
  1. ELIGARD [Suspect]
     Active Substance: LEUPROLIDE ACETATE
     Indication: PROSTATE CANCER
     Dosage: 45 MG, Q 6 MONTH
     Route: 065
     Dates: start: 2017

REACTIONS (3)
  - Hyponatraemia [Unknown]
  - Death [Fatal]
  - Blood glucose increased [Unknown]

NARRATIVE: CASE EVENT DATE: 20200407
